FAERS Safety Report 12606480 (Version 1)
Quarter: 2016Q3

REPORT INFORMATION
  Report Type: Spontaneous
  Country: US (occurrence: None)
  Receive Date: 20160728
  Receipt Date: 20160728
  Transmission Date: 20161109
  Serious: Yes (Hospitalization, Disabling)
  Sender: FDA-Public Use
  Company Number: None

PATIENT
  Age: 63 Year
  Sex: Female
  Weight: 78.02 kg

DRUGS (8)
  1. LOSARTAN. [Concomitant]
     Active Substance: LOSARTAN
  2. TYLENOL [Concomitant]
     Active Substance: ACETAMINOPHEN
  3. BELSOMRA [Suspect]
     Active Substance: SUVOREXANT
     Indication: INSOMNIA
     Dosage: 10 MG AND 15MG  3 IN PACKAGE TAKE 1 AT BEDTIME MOUTH
     Route: 048
  4. ABILIFY [Concomitant]
     Active Substance: ARIPIPRAZOLE
  5. IBUPROFEN. [Concomitant]
     Active Substance: IBUPROFEN
  6. GABAPENTIN. [Concomitant]
     Active Substance: GABAPENTIN
  7. DIAZEPAM. [Concomitant]
     Active Substance: DIAZEPAM
  8. ASPIRIN. [Concomitant]
     Active Substance: ASPIRIN

REACTIONS (6)
  - Road traffic accident [None]
  - Head injury [None]
  - Chest discomfort [None]
  - Concussion [None]
  - Fall [None]
  - Somnambulism [None]

NARRATIVE: CASE EVENT DATE: 20160302
